FAERS Safety Report 10904075 (Version 1)
Quarter: 2015Q1

REPORT INFORMATION
  Report Type: Spontaneous
  Country: US (occurrence: None)
  Receive Date: 20150304
  Receipt Date: 20150304
  Transmission Date: 20150721
  Serious: No
  Sender: FDA-Public Use
  Company Number: None

PATIENT
  Age: 77 Year
  Sex: Female

DRUGS (2)
  1. OLYSIO [Suspect]
     Active Substance: SIMEPREVIR
     Indication: CHRONIC HEPATITIS C
     Dosage: 150 MG, ONCE DAILY, BY MOUTH
     Route: 048
     Dates: start: 20150225, end: 20150301
  2. SOVALDI [Suspect]
     Active Substance: SOFOSBUVIR
     Indication: CHRONIC HEPATITIS C
     Dosage: 400 MG, ONCE DAILY, BY MOUTH
     Route: 048
     Dates: start: 20150225, end: 20150301

REACTIONS (1)
  - Rash [None]

NARRATIVE: CASE EVENT DATE: 20150301
